FAERS Safety Report 23077051 (Version 3)
Quarter: 2023Q4

REPORT INFORMATION
  Report Type: Spontaneous
  Country: US (occurrence: US)
  Receive Date: 20231018
  Receipt Date: 20231222
  Transmission Date: 20240109
  Serious: Yes (Other)
  Sender: FDA-Public Use
  Company Number: US-ABBVIE-5452559

PATIENT
  Age: 71 Year
  Sex: Male
  Weight: 80 kg

DRUGS (14)
  1. SKYRIZI [Suspect]
     Active Substance: RISANKIZUMAB-RZAA
     Indication: Crohn^s disease
     Route: 058
     Dates: start: 20220901, end: 20231016
  2. SKYRIZI [Suspect]
     Active Substance: RISANKIZUMAB-RZAA
     Route: 058
     Dates: start: 20231115
  3. BENADRYL [Concomitant]
     Active Substance: DIPHENHYDRAMINE HYDROCHLORIDE
     Indication: Product used for unknown indication
     Dates: start: 20230614
  4. CETIRIZINE [Concomitant]
     Active Substance: CETIRIZINE HYDROCHLORIDE
     Indication: Product used for unknown indication
     Dates: start: 20220906
  5. DOXYCYCLINE [Concomitant]
     Active Substance: DOXYCYCLINE
     Indication: Product used for unknown indication
     Dosage: ONE TABLET BID
     Dates: start: 20230620
  6. VITAMIN D2 [Concomitant]
     Active Substance: ERGOCALCIFEROL
     Indication: Product used for unknown indication
     Dosage: DOSE 1250 MCG
     Dates: start: 20220908
  7. SACCHAROMYCES CEREVISIAE [Concomitant]
     Active Substance: SACCHAROMYCES CEREVISIAE
     Indication: Product used for unknown indication
     Dosage: TAKE ONE TO TWO CAPSULE BY MOUTH ONES A DAY OR TWICE A DAY
     Route: 048
     Dates: start: 20230428
  8. GABAPENTIN [Concomitant]
     Active Substance: GABAPENTIN
     Indication: Product used for unknown indication
     Dosage: TAKE ONE TO TWO BY MOUTH AT BEDTIME
     Route: 048
     Dates: start: 20231017
  9. STELARA [Concomitant]
     Active Substance: USTEKINUMAB
     Indication: Product used for unknown indication
  10. HYDROXYZINE HYDROCHLORIDE [Concomitant]
     Active Substance: HYDROXYZINE HYDROCHLORIDE
     Indication: Product used for unknown indication
     Dosage: TAKE AT BED TIME
     Route: 048
     Dates: start: 20220302
  11. MELATONIN [Concomitant]
     Active Substance: MELATONIN
     Indication: Product used for unknown indication
     Route: 060
     Dates: start: 20190416
  12. OMEPRAZOLE [Concomitant]
     Active Substance: OMEPRAZOLE
     Indication: Product used for unknown indication
     Dosage: TAKE ONE CAPSULE TWICE A DAY BEFORE MEAL
     Route: 048
     Dates: start: 20230628
  13. ONDANSETRON [Concomitant]
     Active Substance: ONDANSETRON
     Indication: Product used for unknown indication
     Route: 048
     Dates: start: 20220112
  14. TAMSULOSIN [Concomitant]
     Active Substance: TAMSULOSIN
     Indication: Product used for unknown indication
     Dosage: EXTENDED RELEASE

REACTIONS (10)
  - Sepsis [Unknown]
  - Staphylococcal infection [Recovered/Resolved]
  - Abscess limb [Unknown]
  - Intervertebral discitis [Unknown]
  - Bacteraemia [Recovered/Resolved]
  - Osteomyelitis [Unknown]
  - Endocarditis [Unknown]
  - Arthritis bacterial [Unknown]
  - Intervertebral discitis [Unknown]
  - Cellulitis [Unknown]

NARRATIVE: CASE EVENT DATE: 20230120
